FAERS Safety Report 10182382 (Version 3)
Quarter: 2014Q3

REPORT INFORMATION
  Report Type: Other
  Country: CA (occurrence: CA)
  Receive Date: 20140520
  Receipt Date: 20140710
  Transmission Date: 20150326
  Serious: Yes (Other)
  Sender: FDA-Public Use
  Company Number: CA-SHIRE-ALL1-2013-03486

PATIENT
  Age: 59 Year
  Sex: Female

DRUGS (3)
  1. DICLOFENAC [Concomitant]
     Active Substance: DICLOFENAC
     Indication: MUSCULOSKELETAL PAIN
     Dosage: 75 MG, 2X/DAY:BID
     Route: 048
     Dates: start: 20140416
  2. TECTA [Concomitant]
     Active Substance: PANTOPRAZOLE MAGNESIUM
     Indication: PROPHYLAXIS
     Dosage: UNK UNK, 1X/DAY:QD
     Route: 048
     Dates: start: 20140416
  3. VPRIV [Suspect]
     Active Substance: VELAGLUCERASE ALFA
     Indication: PRODUCT USED FOR UNKNOWN INDICATION
     Dosage: 4000 IU, 1X/2WKS
     Route: 041

REACTIONS (3)
  - Hand fracture [Recovered/Resolved]
  - Upper limb fracture [Unknown]
  - Fall [Recovered/Resolved]

NARRATIVE: CASE EVENT DATE: 201305
